FAERS Safety Report 16745877 (Version 1)
Quarter: 2019Q3

REPORT INFORMATION
  Report Type: Spontaneous
  Country: IT (occurrence: IT)
  Receive Date: 20190827
  Receipt Date: 20190827
  Transmission Date: 20191005
  Serious: Yes (Hospitalization)
  Sender: FDA-Public Use
  Company Number: IT-MYLANLABS-2019M1079398

PATIENT
  Age: 64 Year
  Sex: Male
  Weight: 66 kg

DRUGS (8)
  1. EVEROLIMUS. [Concomitant]
     Active Substance: EVEROLIMUS
     Indication: IMMUNOSUPPRESSION
     Dosage: 1.5 MILLIGRAM, QD
     Route: 048
  2. AMBRISENTAN [Suspect]
     Active Substance: AMBRISENTAN
     Indication: PULMONARY HYPERTENSION
     Dosage: 10 MILLIGRAM, QD
     Route: 048
  3. ALLOPURINOL. [Concomitant]
     Active Substance: ALLOPURINOL
     Indication: HYPERURICAEMIA
     Dosage: 150 MILLIGRAM, QD
     Route: 048
  4. CARDIOASPIRIN [Concomitant]
     Active Substance: ASPIRIN
     Indication: CARDIOVASCULAR EVENT PROPHYLAXIS
     Dosage: 100 MILLIGRAM/KILOGRAM, QD
     Route: 048
  5. BISOPROLOL FUMARATE. [Concomitant]
     Active Substance: BISOPROLOL FUMARATE
     Indication: CARDIOVASCULAR EVENT PROPHYLAXIS
     Dosage: 1.25 MILLIGRAM, QD
     Route: 048
  6. CALCITRIOL. [Concomitant]
     Active Substance: CALCITRIOL
     Indication: OSTEOPOROSIS
     Dosage: 0.25 MILLIGRAM, QD
     Route: 048
  7. MYCOPHENOLATE MOFETIL. [Concomitant]
     Active Substance: MYCOPHENOLATE MOFETIL
     Indication: IMMUNOSUPPRESSION
     Dosage: 500 MILLIGRAM, QOD
     Route: 048
  8. MYCOPHENOLATE MOFETIL. [Concomitant]
     Active Substance: MYCOPHENOLATE MOFETIL
     Dosage: 250 MILLIGRAM, QOD
     Route: 048

REACTIONS (2)
  - Asthenia [Recovered/Resolved]
  - Anaemia [Recovered/Resolved]

NARRATIVE: CASE EVENT DATE: 20190110
